FAERS Safety Report 11075372 (Version 1)
Quarter: 2015Q2

REPORT INFORMATION
  Report Type: Spontaneous
  Country: US (occurrence: None)
  Receive Date: 20150428
  Receipt Date: 20150428
  Transmission Date: 20150821
  Serious: No
  Sender: FDA-Public Use
  Company Number: None

PATIENT
  Age: 51 Year
  Sex: Female
  Weight: 88.45 kg

DRUGS (2)
  1. SUMATRIPTAN 50MG [Suspect]
     Active Substance: SUMATRIPTAN
     Indication: MIGRAINE
     Route: 048
     Dates: start: 20150401, end: 20150427
  2. LORAZEPAM. [Concomitant]
     Active Substance: LORAZEPAM

REACTIONS (5)
  - Dysgeusia [None]
  - Product substitution issue [None]
  - Product quality issue [None]
  - Drug ineffective [None]
  - Product physical issue [None]

NARRATIVE: CASE EVENT DATE: 20150406
